FAERS Safety Report 9219179 (Version 2)
Quarter: 2013Q4

REPORT INFORMATION
  Report Type: Spontaneous
  Country: US (occurrence: US)
  Receive Date: 20130409
  Receipt Date: 20131111
  Transmission Date: 20140711
  Serious: Yes (Other)
  Sender: FDA-Public Use
  Company Number: US-BAYER-2013-044142

PATIENT
  Age: 17 Year
  Sex: Female

DRUGS (6)
  1. OCELLA [Suspect]
     Indication: CONTRACEPTION
     Dosage: UNK
     Dates: start: 2010
  2. OMEPRAZOLE [Concomitant]
     Dosage: 20 MG, UNK
     Dates: start: 20110503, end: 20110707
  3. SULFAMETHOXAZOLE W/TRIMETHOPRIM [Concomitant]
     Dosage: UNK
     Dates: start: 20110708
  4. ONDANSETRON HYDROCHLORIDE [Concomitant]
     Dosage: 4 MG, UNK
     Dates: start: 20110708
  5. HYDROCODONE W/ACETAMINOPHEN [Concomitant]
     Dosage: 5-500
     Dates: start: 20110708
  6. PROMETHAZINE [Concomitant]
     Dosage: 25 MG, UNK
     Dates: start: 20110711

REACTIONS (5)
  - Cholelithiasis [None]
  - Cholecystectomy [None]
  - Injury [None]
  - Pain [None]
  - Pain [None]
